FAERS Safety Report 6030960-7 (Version None)
Quarter: 2009Q1

REPORT INFORMATION
  Report Type: 
  Country: None (occurrence: None)
  Receive Date: 20090106
  Receipt Date: 20081224
  Transmission Date: 20090719
  Serious: Yes (Hospitalization)
  Sender: FDA-Public Use
  Company Number: 1000003365

PATIENT
  Sex: Female

DRUGS (2)
  1. CITALOPRAM HYDROBROMIDE [Suspect]
     Dosage: ORAL
     Route: 048
  2. IMIGRAN (TABLEETS) [Suspect]
     Indication: MIGRAINE

REACTIONS (2)
  - DRUG INTERACTION [None]
  - EPILEPSY [None]
